FAERS Safety Report 15490305 (Version 10)
Quarter: 2020Q1

REPORT INFORMATION
  Report Type: Spontaneous
  Country: US (occurrence: US)
  Receive Date: 20181011
  Receipt Date: 20200220
  Transmission Date: 20200409
  Serious: Yes (Other)
  Sender: FDA-Public Use
  Company Number: US-PFIZER INC-2018408651

PATIENT
  Age: 55 Year
  Sex: Female
  Weight: 53 kg

DRUGS (9)
  1. SOMATULINE [LANREOTIDE] [Concomitant]
     Active Substance: LANREOTIDE
     Indication: BONE DISORDER
     Dosage: 120 MG, MONTHLY
     Route: 042
     Dates: start: 201808
  2. SUTENT [Suspect]
     Active Substance: SUNITINIB MALATE
     Indication: PANCREATIC NEUROENDOCRINE TUMOUR
     Dosage: 37.5 MG, CYCLIC (28 DAYS ON / 14 DAYS OFF)
     Route: 048
     Dates: start: 20180822
  3. SUTENT [Suspect]
     Active Substance: SUNITINIB MALATE
     Dosage: 25 MG, CYCLIC, (25 MG X 28)
     Route: 048
  4. ZOMETA [Concomitant]
     Active Substance: ZOLEDRONIC ACID
     Indication: BONE DISORDER
     Dosage: 4 MG, MONTHLY
     Dates: start: 201808
  5. SUTENT [Suspect]
     Active Substance: SUNITINIB MALATE
     Dosage: 37.5 MG, UNK
  6. SUTENT [Suspect]
     Active Substance: SUNITINIB MALATE
     Dosage: 37.5 MG, UNK
  7. SUTENT [Suspect]
     Active Substance: SUNITINIB MALATE
     Dosage: 25 MG, CYCLIC (2 WEEKS ON AND 1 WEEK OFF)
  8. TURMERIC CURCUMIN [Concomitant]
     Active Substance: HERBALS\TURMERIC
     Dosage: UNK
  9. ANASTROZOLE. [Concomitant]
     Active Substance: ANASTROZOLE
     Indication: BREAST CANCER
     Dosage: 1 MG, DAILY
     Dates: start: 201903

REACTIONS (16)
  - Hypertension [Not Recovered/Not Resolved]
  - Influenza like illness [Not Recovered/Not Resolved]
  - Bone pain [Not Recovered/Not Resolved]
  - Lethargy [Unknown]
  - Dry mouth [Unknown]
  - Erythema of eyelid [Unknown]
  - Malaise [Unknown]
  - Headache [Unknown]
  - Second primary malignancy [Not Recovered/Not Resolved]
  - Breast cancer [Not Recovered/Not Resolved]
  - Ageusia [Not Recovered/Not Resolved]
  - Hypotension [Unknown]
  - Arthralgia [Unknown]
  - Fatigue [Recovered/Resolved]
  - Pain [Not Recovered/Not Resolved]
  - Chills [Not Recovered/Not Resolved]

NARRATIVE: CASE EVENT DATE: 201907
